FAERS Safety Report 21005782 (Version 1)
Quarter: 2022Q2

REPORT INFORMATION
  Report Type: Spontaneous
  Country: US (occurrence: US)
  Receive Date: 20220624
  Receipt Date: 20220624
  Transmission Date: 20220721
  Serious: Yes (Other)
  Sender: FDA-Public Use
  Company Number: US-IBSA PHARMA INC.-2022IBS000195

PATIENT

DRUGS (2)
  1. LEVOTHYROXINE SODIUM [Suspect]
     Active Substance: LEVOTHYROXINE SODIUM
     Indication: Hypothyroidism
     Dosage: 125 MICROGRAM, QD
     Route: 065
  2. CARBAMAZEPINE [Suspect]
     Active Substance: CARBAMAZEPINE
     Indication: Mood swings
     Dosage: UNK
     Route: 065

REACTIONS (5)
  - Depressed mood [Unknown]
  - Hyponatraemia [Unknown]
  - Hypothyroidism [Recovering/Resolving]
  - Drug ineffective [Unknown]
  - Drug interaction [Unknown]
